FAERS Safety Report 5328291-3 (Version None)
Quarter: 2007Q2

REPORT INFORMATION
  Report Type: 
  Country: None (occurrence: None)
  Receive Date: 20070518
  Receipt Date: 20070508
  Transmission Date: 20071010
  Serious: Yes (Hospitalization)
  Sender: FDA-Public Use
  Company Number: US-JNJFOC-20070501927

PATIENT
  Sex: Female
  Weight: 69.4 kg

DRUGS (4)
  1. INFLIXIMAB [Suspect]
     Indication: INFLAMMATORY BOWEL DISEASE
     Route: 042
  2. PREDNISONE TAB [Concomitant]
  3. IRON [Concomitant]
  4. MULTI-VITAMIN [Concomitant]

REACTIONS (1)
  - COLITIS [None]
